FAERS Safety Report 5329942-X (Version None)
Quarter: 2007Q2

REPORT INFORMATION
  Report Type: 
  Country: None (occurrence: None)
  Receive Date: 20070517
  Receipt Date: 20070517
  Transmission Date: 20071010
  Serious: Yes (Death)
  Sender: FDA-Public Use
  Company Number: None

PATIENT
  Age: 65 Year
  Sex: Male
  Weight: 70.7611 kg

DRUGS (12)
  1. TEMODAR [Suspect]
     Indication: MALIGNANT MELANOMA
     Dosage: 140MG,QD,FOR 6 WKS
     Dates: start: 20070504, end: 20070507
  2. VELCADE [Suspect]
     Indication: MALIGNANT MELANOMA
     Dosage: 2.5MG,2/WK FOR 2WKS,IVP
     Route: 042
     Dates: start: 20070424, end: 20070504
  3. COENZYME Q10 [Concomitant]
  4. OMEGA [Concomitant]
  5. VITA K AND C [Concomitant]
  6. MULTI-VIT [Concomitant]
  7. FLOMAX [Concomitant]
  8. LASIX [Concomitant]
  9. COMBINVENT [Concomitant]
  10. ZOFRAN [Concomitant]
  11. ARANESP [Concomitant]
  12. LORTAB [Concomitant]

REACTIONS (8)
  - ATELECTASIS [None]
  - DISEASE PROGRESSION [None]
  - DYSPNOEA EXERTIONAL [None]
  - HAEMOGLOBIN DECREASED [None]
  - METASTASES TO LUNG [None]
  - OXYGEN SATURATION DECREASED [None]
  - PLATELET COUNT DECREASED [None]
  - PLEURAL EFFUSION [None]
